FAERS Safety Report 21801635 (Version 34)
Quarter: 2025Q1

REPORT INFORMATION
  Report Type: Report from Study
  Country: CO (occurrence: CO)
  Receive Date: 20221230
  Receipt Date: 20250219
  Transmission Date: 20250409
  Serious: Yes (Hospitalization, Other)
  Sender: TAKEDA
  Company Number: CO-TAKEDA-2022TUS035249

PATIENT
  Age: 61 Year
  Sex: Female
  Weight: 71 kg

DRUGS (3)
  1. IXAZOMIB [Suspect]
     Active Substance: IXAZOMIB
     Indication: Plasma cell myeloma
  2. DEXAMETHASONE [Suspect]
     Active Substance: DEXAMETHASONE
     Indication: Plasma cell myeloma
  3. LENALIDOMIDE [Suspect]
     Active Substance: LENALIDOMIDE
     Indication: Plasma cell myeloma

REACTIONS (49)
  - Foot fracture [Not Recovered/Not Resolved]
  - Road traffic accident [Not Recovered/Not Resolved]
  - Shoulder fracture [Recovering/Resolving]
  - Ankle fracture [Recovering/Resolving]
  - Postoperative wound infection [Recovering/Resolving]
  - Lower limb fracture [Recovering/Resolving]
  - Clavicle fracture [Recovering/Resolving]
  - Myocardial infarction [Recovered/Resolved]
  - Respiratory distress [Recovered/Resolved]
  - Gait disturbance [Unknown]
  - Discouragement [Recovered/Resolved]
  - Urticaria [Unknown]
  - Bone pain [Unknown]
  - Fall [Unknown]
  - Balance disorder [Unknown]
  - Dermatitis acneiform [Not Recovered/Not Resolved]
  - Somnolence [Unknown]
  - Dizziness [Unknown]
  - Insomnia [Unknown]
  - Nausea [Unknown]
  - Depressed mood [Not Recovered/Not Resolved]
  - Emotional distress [Not Recovered/Not Resolved]
  - Skin discolouration [Recovering/Resolving]
  - Hypertension [Unknown]
  - Pain [Recovering/Resolving]
  - Dysphonia [Unknown]
  - Upper limb fracture [Recovering/Resolving]
  - Accident [Recovering/Resolving]
  - Inflammation [Unknown]
  - Limb injury [Recovering/Resolving]
  - Pain in extremity [Unknown]
  - Cough [Unknown]
  - Pruritus [Recovering/Resolving]
  - Arthralgia [Unknown]
  - Treatment noncompliance [Unknown]
  - Humerus fracture [Unknown]
  - Procedural pain [Not Recovered/Not Resolved]
  - Burning sensation [Not Recovered/Not Resolved]
  - Influenza [Recovered/Resolved]
  - Weight increased [Unknown]
  - Laziness [Unknown]
  - Chest pain [Recovered/Resolved]
  - Osteoarthritis [Unknown]
  - Malaise [Recovered/Resolved]
  - Injury [Unknown]
  - Weight decreased [Unknown]
  - Product availability issue [Unknown]
  - Off label use [Unknown]
  - Inappropriate schedule of product administration [Unknown]

NARRATIVE: CASE EVENT DATE: 20220521
